FAERS Safety Report 8377790-9 (Version None)
Quarter: 2012Q2

REPORT INFORMATION
  Report Type: 
  Country: None (occurrence: None)
  Receive Date: 20120522
  Receipt Date: 20120517
  Transmission Date: 20120825
  Serious: No
  Sender: FDA-Public Use
  Company Number: US-BAYER-2012-049582

PATIENT
  Sex: Female

DRUGS (1)
  1. CIPROFLOXACIN HCL [Suspect]
     Indication: DENTAL CARE

REACTIONS (3)
  - SENSATION OF HEAVINESS [None]
  - HYPOAESTHESIA [None]
  - BURNING SENSATION [None]
